FAERS Safety Report 20823491 (Version 1)
Quarter: 2022Q2

REPORT INFORMATION
  Report Type: Report from Study
  Country: US (occurrence: US)
  Receive Date: 20220513
  Receipt Date: 20220513
  Transmission Date: 20220721
  Serious: No
  Sender: FDA-Public Use
  Company Number: US-ACADIA PHARMACEUTICALS INC.-ACA-2022-PIM-001392

PATIENT
  Sex: Male

DRUGS (12)
  1. NUPLAZID [Suspect]
     Active Substance: PIMAVANSERIN TARTRATE
     Indication: Parkinson^s disease psychosis
     Dosage: 34 MILLIGRAM, QD
     Route: 048
     Dates: start: 20220406
  2. NUPLAZID [Suspect]
     Active Substance: PIMAVANSERIN TARTRATE
     Indication: Hallucination
  3. NUPLAZID [Suspect]
     Active Substance: PIMAVANSERIN TARTRATE
     Indication: Delusion
  4. OXYBUTYNIN [Concomitant]
     Active Substance: OXYBUTYNIN
     Dosage: 5 MILLIGRAM
  5. RAMIPRIL [Concomitant]
     Active Substance: RAMIPRIL
     Dosage: 10 MILLIGRAM
  6. ALFUZOSIN [Concomitant]
     Active Substance: ALFUZOSIN
     Dosage: 10 MILLIGRAM
  7. AMLODIPINE [Concomitant]
     Active Substance: AMLODIPINE BESYLATE
     Dosage: 10 MILLIGRAM
  8. CLONAZEPAM [Concomitant]
     Active Substance: CLONAZEPAM
     Dosage: 0.5 MG
  9. SINEMET [Concomitant]
     Active Substance: CARBIDOPA\LEVODOPA
     Dosage: 50-200
  10. RIVASTIGMINE [Concomitant]
     Active Substance: RIVASTIGMINE
     Dosage: 3 MILLIGRAM
  11. AMANTADINE [Concomitant]
     Active Substance: AMANTADINE
     Dosage: 100 MILLIGRAM
  12. GLYCOPYRROLATE [Concomitant]
     Active Substance: GLYCOPYRROLATE
     Dosage: 2 MILLIGRAM

REACTIONS (7)
  - Condition aggravated [Not Recovered/Not Resolved]
  - Delusion [Not Recovered/Not Resolved]
  - Visual impairment [Not Recovered/Not Resolved]
  - Disturbance in attention [Not Recovered/Not Resolved]
  - Confusional state [Not Recovered/Not Resolved]
  - Drug ineffective [Not Recovered/Not Resolved]
  - Hallucination [Not Recovered/Not Resolved]
